FAERS Safety Report 6850769-1 (Version None)
Quarter: 2010Q3

REPORT INFORMATION
  Report Type: 
  Country: None (occurrence: None)
  Receive Date: 20100716
  Receipt Date: 20100709
  Transmission Date: 20110219
  Serious: Yes (Hospitalization, Disabling, Other)
  Sender: FDA-Public Use
  Company Number: US-MERCK-0903USA03155

PATIENT
  Age: 49 Year
  Sex: Female
  Weight: 66 kg

DRUGS (3)
  1. FOSAMAX [Suspect]
     Indication: OSTEOPOROSIS
     Route: 048
     Dates: start: 20010401, end: 20061201
  2. FOSAMAX [Suspect]
     Route: 048
     Dates: start: 20020401, end: 20040601
  3. LEVALBUTEROL [Concomitant]
     Indication: ASTHMA
     Route: 055
     Dates: start: 19790101

REACTIONS (49)
  - ABSCESS [None]
  - ABSCESS ORAL [None]
  - ACCIDENT [None]
  - ADVERSE EVENT [None]
  - ALVEOLAR OSTEITIS [None]
  - ANTINUCLEAR ANTIBODY POSITIVE [None]
  - APHTHOUS STOMATITIS [None]
  - ARTHROPOD BITE [None]
  - ASTHMA [None]
  - AVULSION FRACTURE [None]
  - BREAST MASS [None]
  - CONTUSION [None]
  - COUGH [None]
  - DENTAL CARIES [None]
  - EXCORIATION [None]
  - EXOSTOSIS [None]
  - FALL [None]
  - FINGER DEFORMITY [None]
  - GASTROINTESTINAL DISORDER [None]
  - GINGIVAL BLEEDING [None]
  - GINGIVAL RECESSION [None]
  - HEAD INJURY [None]
  - IMPAIRED HEALING [None]
  - INCREASED TENDENCY TO BRUISE [None]
  - JOINT INJURY [None]
  - JOINT SPRAIN [None]
  - LIGAMENT PAIN [None]
  - LIMB INJURY [None]
  - MENOPAUSAL DEPRESSION [None]
  - MULTIPLE FRACTURES [None]
  - MUSCULAR WEAKNESS [None]
  - NECK MASS [None]
  - NERVE INJURY [None]
  - ORAL CAVITY FISTULA [None]
  - ORAL INFECTION [None]
  - OROPHARYNGEAL PAIN [None]
  - OSTEOMYELITIS [None]
  - OSTEONECROSIS OF JAW [None]
  - PAIN IN EXTREMITY [None]
  - PHARYNGITIS [None]
  - PLEURITIC PAIN [None]
  - RESPIRATORY TRACT INFECTION [None]
  - ROAD TRAFFIC ACCIDENT [None]
  - SEXUAL ABUSE [None]
  - SKIN CANCER [None]
  - TOOTH DISORDER [None]
  - TOOTH IMPACTED [None]
  - WHIPLASH INJURY [None]
  - WRIST FRACTURE [None]
